FAERS Safety Report 8088234-9 (Version None)
Quarter: 2012Q1

REPORT INFORMATION
  Report Type: 
  Country: None (occurrence: None)
  Receive Date: 20120131
  Receipt Date: 20120126
  Transmission Date: 20120608
  Serious: No
  Sender: FDA-Public Use
  Company Number: US-BIOGENIDEC-2012BI003294

PATIENT
  Sex: Female

DRUGS (3)
  1. TYSABRI [Suspect]
     Indication: MULTIPLE SCLEROSIS
     Route: 042
     Dates: start: 20080410, end: 20110503
  2. TYSABRI [Suspect]
     Route: 042
     Dates: start: 20110726
  3. AVONEX [Concomitant]
     Indication: MULTIPLE SCLEROSIS
     Route: 030
     Dates: start: 20011120

REACTIONS (4)
  - GASTROENTERITIS VIRAL [None]
  - SINUSITIS [None]
  - SINUS CONGESTION [None]
  - ORAL HERPES [None]
